FAERS Safety Report 19381408 (Version 2)
Quarter: 2021Q3

REPORT INFORMATION
  Report Type: Spontaneous
  Country: US (occurrence: US)
  Receive Date: 20210607
  Receipt Date: 20210715
  Transmission Date: 20211014
  Serious: No
  Sender: FDA-Public Use
  Company Number: US-PFIZER INC-2021636178

PATIENT
  Age: 61 Year
  Sex: Female
  Weight: 122.47 kg

DRUGS (2)
  1. TOZINAMERAN. [Suspect]
     Active Substance: TOZINAMERAN
     Indication: COVID-19 IMMUNISATION
     Dosage: DOSE 2, SINGLE
     Dates: start: 20210429, end: 20210429
  2. IBRANCE [Suspect]
     Active Substance: PALBOCICLIB
     Indication: BREAST CANCER METASTATIC
     Dosage: 125 MG, 21 DAYS
     Dates: start: 201604, end: 20210527

REACTIONS (4)
  - Abdominal discomfort [Recovered/Resolved with Sequelae]
  - Memory impairment [Unknown]
  - Abdominal pain lower [Recovered/Resolved]
  - Abdominal pain upper [Recovered/Resolved with Sequelae]

NARRATIVE: CASE EVENT DATE: 20210601
